FAERS Safety Report 6756031-X (Version None)
Quarter: 2010Q2

REPORT INFORMATION
  Report Type: 
  Country: None (occurrence: None)
  Receive Date: 20100524
  Receipt Date: 20100312
  Transmission Date: 20101027
  Serious: No
  Sender: FDA-Public Use
  Company Number: 008475

PATIENT
  Sex: Female

DRUGS (2)
  1. CIMZIA [Suspect]
     Indication: CROHN'S DISEASE
     Dosage: 200 MG SUBCUTANEOUS
     Route: 058
     Dates: start: 20081130
  2. CORTICOSTEROID NOS [Concomitant]

REACTIONS (7)
  - ABDOMINAL RIGIDITY [None]
  - ARTHRALGIA [None]
  - DECREASED APPETITE [None]
  - EARLY SATIETY [None]
  - FLATULENCE [None]
  - MUCOUS STOOLS [None]
  - VOMITING [None]
